FAERS Safety Report 23180142 (Version 3)
Quarter: 2023Q4

REPORT INFORMATION
  Report Type: Spontaneous
  Country: DK (occurrence: DK)
  Receive Date: 20231114
  Receipt Date: 20231204
  Transmission Date: 20240110
  Serious: Yes (Other)
  Sender: FDA-Public Use
  Company Number: DK-BAUSCHBL-2023BNL011308

PATIENT
  Sex: Male

DRUGS (19)
  1. DEXAMETHASONE [Suspect]
     Active Substance: DEXAMETHASONE
     Indication: Birdshot chorioretinopathy
     Route: 061
     Dates: start: 2002
  2. PREDNISOLONE [Suspect]
     Active Substance: PREDNISOLONE
     Indication: Birdshot chorioretinopathy
     Route: 048
     Dates: start: 2002
  3. PREDNISOLONE [Suspect]
     Active Substance: PREDNISOLONE
     Dosage: 37.5 -50 MG DAILY
     Route: 048
     Dates: start: 2006
  4. PREDNISOLONE [Suspect]
     Active Substance: PREDNISOLONE
     Dosage: TAPERED
     Route: 048
     Dates: start: 200703, end: 200801
  5. PREDNISOLONE [Suspect]
     Active Substance: PREDNISOLONE
     Route: 048
     Dates: start: 200801
  6. PREDNISOLONE [Suspect]
     Active Substance: PREDNISOLONE
     Route: 048
     Dates: start: 20080701
  7. PREDNISOLONE [Suspect]
     Active Substance: PREDNISOLONE
     Dosage: FURTHER REDUCED UNTIL REACHING A DOSE OF 10 MG PER DAY
     Route: 048
     Dates: start: 200807
  8. PREDNISOLONE [Suspect]
     Active Substance: PREDNISOLONE
     Dosage: 5-15 MG PER DAY
     Route: 048
  9. PREDNISOLONE [Suspect]
     Active Substance: PREDNISOLONE
     Dosage: 5-10 MG PER DAY
     Route: 048
  10. KENALOG [Suspect]
     Active Substance: TRIAMCINOLONE ACETONIDE
     Indication: Birdshot chorioretinopathy
     Route: 065
     Dates: start: 2002
  11. SANDIMMUNE [Concomitant]
     Active Substance: CYCLOSPORINE
     Indication: Birdshot chorioretinopathy
     Dates: start: 2002
  12. METHOTREXATE [Concomitant]
     Active Substance: METHOTREXATE
     Indication: Birdshot chorioretinopathy
     Dates: start: 2002
  13. AZATHIOPRINE SODIUM [Concomitant]
     Active Substance: AZATHIOPRINE SODIUM
     Indication: Birdshot chorioretinopathy
     Dates: start: 2002
  14. REMICADE [Concomitant]
     Active Substance: INFLIXIMAB
     Indication: Birdshot chorioretinopathy
     Dates: start: 2002
  15. LUCENTIS [Concomitant]
     Active Substance: RANIBIZUMAB
     Indication: Birdshot chorioretinopathy
     Dosage: INTRAVITREAL, THREE TIMES AT 4-WEEK INTERVALS IN BOTH EYES (A TOTAL OF 35 RANIBIZUMAB INJECTIONS)
     Dates: start: 2007, end: 2010
  16. LUCENTIS [Concomitant]
     Active Substance: RANIBIZUMAB
     Dosage: INTRAVITREAL, 4-WEEKLY INJECTIONS IN THE LEFT EYE UNTIL A TOTAL OF 64 INJECTIONS
     Dates: start: 2010, end: 2014
  17. LUCENTIS [Concomitant]
     Active Substance: RANIBIZUMAB
     Dosage: INTRAVITREAL, 4-WEEKLY INJECTIONS IN THE LEFT EYE WITH A COURSE OF 14 ADDITIONAL INJECTIONS
     Dates: end: 2016
  18. CELLCEPT [Concomitant]
     Active Substance: MYCOPHENOLATE MOFETIL
     Indication: Birdshot chorioretinopathy
     Dates: start: 2002
  19. AFLIBERCEPT [Concomitant]
     Active Substance: AFLIBERCEPT
     Indication: Birdshot chorioretinopathy
     Dosage: LEFT EYE

REACTIONS (1)
  - Intraocular pressure increased [Unknown]

NARRATIVE: CASE EVENT DATE: 20020101
